FAERS Safety Report 8228079-X (Version None)
Quarter: 2012Q1

REPORT INFORMATION
  Report Type: 
  Country: None (occurrence: None)
  Receive Date: 20120322
  Receipt Date: 20120113
  Transmission Date: 20120608
  Serious: No
  Sender: FDA-Public Use
  Company Number: US-BRISTOL-MYERS SQUIBB COMPANY-16325995

PATIENT
  Age: 55 Year
  Sex: Female

DRUGS (4)
  1. ERBITUX [Suspect]
     Indication: COLON CANCER
     Dosage: LOADING DOSE:660MG; ONLY CETUXIMAB ON 22DEC11,30DEC11 AND 06JAN2012.
     Route: 042
     Dates: start: 20111216
  2. LEUCOVORIN CALCIUM [Suspect]
     Indication: COLON CANCER
     Dates: start: 20111216
  3. IRINOTECAN HCL [Suspect]
     Indication: COLON CANCER
     Dates: start: 20111216
  4. FLUOROURACIL [Suspect]
     Indication: COLON CANCER
     Dates: start: 20111216

REACTIONS (1)
  - RASH [None]
